FAERS Safety Report 5023724-4 (Version None)
Quarter: 2006Q2

REPORT INFORMATION
  Report Type: 
  Country: None (occurrence: None)
  Receive Date: 20060612
  Receipt Date: 20060602
  Transmission Date: 20061013
  Serious: Yes (Other)
  Sender: FDA-Public Use
  Company Number: 2006UW10725

PATIENT
  Age: 53 Year
  Sex: Male

DRUGS (4)
  1. SEROQUEL [Suspect]
     Route: 048
  2. HALDOL [Concomitant]
  3. ATIVAN [Concomitant]
  4. DEPAKOTE [Concomitant]

REACTIONS (1)
  - FALL [None]
